FAERS Safety Report 24366305 (Version 1)
Quarter: 2024Q3

REPORT INFORMATION
  Report Type: Spontaneous
  Country: TH (occurrence: TH)
  Receive Date: 20240926
  Receipt Date: 20240926
  Transmission Date: 20241017
  Serious: Yes (Death, Life-Threatening, Hospitalization)
  Sender: STRIDES
  Company Number: TH-STRIDES ARCOLAB LIMITED-2024SP012224

PATIENT
  Age: 4 Year
  Sex: Female

DRUGS (2)
  1. PREDNISOLONE [Suspect]
     Active Substance: PREDNISOLONE
     Indication: Autoimmune lymphoproliferative syndrome
     Dosage: 0.7 MILLIGRAM/KILOGRAM, QD
     Route: 065
  2. CYCLOSPORINE [Suspect]
     Active Substance: CYCLOSPORINE
     Indication: Autoimmune lymphoproliferative syndrome
     Dosage: 11.5 MILLIGRAM/KILOGRAM, QD
     Route: 065

REACTIONS (10)
  - Hypovolaemic shock [Fatal]
  - Pleural effusion [Fatal]
  - Gastric ulcer haemorrhage [Fatal]
  - Disseminated intravascular coagulation [Fatal]
  - Pancytopenia [Fatal]
  - Pulmonary mass [Fatal]
  - Upper gastrointestinal haemorrhage [Fatal]
  - Disseminated mycobacterium avium complex infection [Fatal]
  - Gastroenteritis [Fatal]
  - Helicobacter infection [Fatal]
